FAERS Safety Report 4622261-6 (Version None)
Quarter: 2005Q1

REPORT INFORMATION
  Report Type: 
  Country: None (occurrence: None)
  Receive Date: 20050324
  Receipt Date: 20050324
  Transmission Date: 20050727
  Serious: No
  Sender: FDA-Public Use
  Company Number: None

PATIENT
  Sex: Male
  Weight: 85.9 kg

DRUGS (1)
  1. CETUXIMAB [Suspect]
     Dosage: WEEKLY
     Dates: start: 20050209

REACTIONS (1)
  - DISEASE PROGRESSION [None]
